FAERS Safety Report 7369571-X (Version None)
Quarter: 2011Q1

REPORT INFORMATION
  Report Type: 
  Country: None (occurrence: None)
  Receive Date: 20110314
  Receipt Date: 20091114
  Transmission Date: 20110831
  Serious: Yes (Hospitalization, Other)
  Sender: FDA-Public Use
  Company Number: 2009AP004605

PATIENT
  Age: 16 Year
  Sex: Male

DRUGS (14)
  1. PIMOZIDE [Suspect]
     Dosage: 3 MG;QD
  2. ZIPRASIDONE [Suspect]
  3. TOPIRAMATE [Suspect]
     Indication: DECREASED APPETITE
     Dosage: 75 MG;QD
  4. ARIPIPRAZOLE [Suspect]
     Indication: DECREASED APPETITE
  5. BENZATROPINE [Concomitant]
  6. LEVETIRACETAM [Suspect]
  7. TETRABENAZINE [Concomitant]
  8. ALPRAZOLAM [Concomitant]
  9. HALOPERIDOL [Concomitant]
  10. RISPERIDONE [Concomitant]
  11. MIDAZOLAM [Concomitant]
  12. FLUPHENAZINE [Concomitant]
  13. FLUOXETINE HYDROCHLORIDE [Suspect]
     Indication: ANXIETY
     Dosage: 30 MG; PO; 50 MG;QD; 40 MG;QD
  14. OXCARBAZEPINE [Suspect]

REACTIONS (4)
  - ELECTROCARDIOGRAM QT PROLONGED [None]
  - TIC [None]
  - CONDITION AGGRAVATED [None]
  - DRUG INTERACTION [None]
